FAERS Safety Report 6321525-8 (Version None)
Quarter: 2009Q3

REPORT INFORMATION
  Report Type: 
  Country: None (occurrence: None)
  Receive Date: 20090824
  Receipt Date: 20060418
  Transmission Date: 20100115
  Serious: Yes (Hospitalization, Other)
  Sender: FDA-Public Use
  Company Number: US-ASTRAZENECA-2006UW07041

PATIENT
  Age: 15830 Day
  Sex: Female
  Weight: 97.1 kg

DRUGS (27)
  1. SEROQUEL [Suspect]
     Indication: PSYCHOTIC DISORDER
     Dosage: 100 MG - 800 MG
     Route: 048
     Dates: start: 20040505, end: 20041022
  2. SEROQUEL [Suspect]
     Dosage: 25 TO 400 MG AT NIGHT
     Route: 048
     Dates: start: 20060515
  3. RISPERDAL [Suspect]
     Dates: start: 20020101, end: 20060101
  4. RISPERDAL [Suspect]
     Dosage: 1 TO 4 MG
     Dates: start: 20041022, end: 20060515
  5. ZYPREXA [Concomitant]
     Dates: start: 20020301, end: 20021201
  6. EFFEXOR XR [Concomitant]
     Dosage: 150 TO 375 MG
     Route: 048
     Dates: start: 20040505
  7. LISINOPRIL [Concomitant]
     Dosage: 5 TO 10 MG DAILY
     Route: 048
     Dates: start: 20041006
  8. GLUCOPHAGE [Concomitant]
     Dosage: 1000 TO 2000 MG
     Route: 048
     Dates: start: 20041006
  9. ZETIA [Concomitant]
     Route: 048
     Dates: start: 20060525
  10. AMBIEN [Concomitant]
     Dosage: 12.5 MG AT EVENING
     Route: 048
     Dates: start: 20061025
  11. VALIUM [Concomitant]
     Route: 048
     Dates: start: 20061026
  12. LEVEMIR [Concomitant]
     Dosage: 40 UNITS TWICE A DAY
     Dates: start: 20061026
  13. COLACE [Concomitant]
     Dosage: 100 MG CAPSULE EVERY 72 HRS
     Route: 048
     Dates: start: 20061026
  14. ESKALITH [Concomitant]
     Route: 048
     Dates: start: 20041006
  15. KLONOPIN [Concomitant]
     Dosage: 1 TO 3 MG
     Dates: start: 20040430
  16. ASPIRIN [Concomitant]
     Dates: start: 20041006
  17. GEODON [Concomitant]
     Route: 048
     Dates: start: 20041006
  18. AMARYL [Concomitant]
     Dosage: 1 TO 2 MG
     Route: 048
     Dates: start: 20051130
  19. HUMALOG [Concomitant]
     Dosage: 1 UNIT AS REQUIRED
     Dates: start: 20041006
  20. MOTRIN [Concomitant]
     Route: 048
     Dates: start: 20041006
  21. TRAZODONE HCL [Concomitant]
     Dates: start: 20050921
  22. LUNESTA [Concomitant]
     Dates: start: 20060403
  23. LAMICTAL [Concomitant]
     Dates: start: 20060515
  24. ABILIFY [Concomitant]
     Dates: start: 20061001
  25. ABILIFY [Concomitant]
     Dosage: 5 TO 15 MG
     Dates: start: 20061103
  26. WELLBUTRIN XL [Concomitant]
     Dosage: 150 TO 300 MG
     Dates: start: 20061103
  27. THORAZINE [Concomitant]
     Dates: start: 20061103

REACTIONS (9)
  - DIABETES MELLITUS [None]
  - DIABETES MELLITUS INADEQUATE CONTROL [None]
  - KETOACIDOSIS [None]
  - LIVER FUNCTION TEST ABNORMAL [None]
  - PANCREATITIS [None]
  - TARDIVE DYSKINESIA [None]
  - TYPE 1 DIABETES MELLITUS [None]
  - TYPE 2 DIABETES MELLITUS [None]
  - WEIGHT INCREASED [None]
